FAERS Safety Report 9816429 (Version 1)
Quarter: 2014Q1

REPORT INFORMATION
  Report Type: Spontaneous
  Country: US (occurrence: US)
  Receive Date: 20140114
  Receipt Date: 20140114
  Transmission Date: 20141002
  Serious: Yes (Death)
  Sender: FDA-Public Use
  Company Number: US-PFIZER INC-2014005921

PATIENT
  Age: 63 Year
  Sex: Male

DRUGS (8)
  1. TRIAZOLAM [Suspect]
     Route: 048
  2. DIAZEPAM [Suspect]
     Route: 048
  3. ZOLPIDEM [Suspect]
     Route: 048
  4. TEMAZEPAM [Suspect]
     Route: 048
  5. FLURAZEPAM [Suspect]
     Route: 048
  6. HYDROCODONE W/ACETAMINOPHEN [Suspect]
     Route: 048
  7. NORTRIPTYLINE [Suspect]
     Route: 048
  8. PROPOXYPHENE HCL AND ACETAMINOPHEN [Suspect]
     Route: 048

REACTIONS (1)
  - Completed suicide [Fatal]
